FAERS Safety Report 5527235-9 (Version None)
Quarter: 2007Q4

REPORT INFORMATION
  Report Type: 
  Country: None (occurrence: None)
  Receive Date: 20071121
  Receipt Date: 20071120
  Transmission Date: 20080405
  Serious: Yes (Death, Other)
  Sender: FDA-Public Use
  Company Number: CERZ-11989

PATIENT
  Age: 78 Year
  Sex: Male
  Weight: 66 kg

DRUGS (1)
  1. CEREZYME [Suspect]
     Indication: GAUCHER'S DISEASE
     Dosage: 50 U/KG Q2WKS IV
     Route: 042
     Dates: start: 19970310

REACTIONS (2)
  - CEREBROVASCULAR ACCIDENT [None]
  - COGNITIVE DISORDER [None]
